FAERS Safety Report 8167166-1 (Version None)
Quarter: 2012Q1

REPORT INFORMATION
  Report Type: 
  Country: None (occurrence: None)
  Receive Date: 20120227
  Receipt Date: 20120223
  Transmission Date: 20120608
  Serious: Yes (Death, Hospitalization)
  Sender: FDA-Public Use
  Company Number: US-ABBOTT-12P-163-0908268-00

PATIENT
  Sex: Female

DRUGS (4)
  1. MEGACE [Concomitant]
     Indication: PRODUCT USED FOR UNKNOWN INDICATION
     Dates: end: 20111014
  2. DURAGESIC-100 [Concomitant]
     Indication: PRODUCT USED FOR UNKNOWN INDICATION
     Route: 062
     Dates: end: 20111014
  3. DIAZEPAM [Concomitant]
     Indication: PRODUCT USED FOR UNKNOWN INDICATION
     Route: 054
     Dates: end: 20111014
  4. SYNTHROID [Suspect]
     Indication: PRODUCT USED FOR UNKNOWN INDICATION
     Dates: start: 20110901, end: 20111014

REACTIONS (11)
  - LISTLESS [None]
  - DYSKINESIA [None]
  - DEHYDRATION [None]
  - HYPERHIDROSIS [None]
  - DYSARTHRIA [None]
  - TORTICOLLIS [None]
  - EXOPHTHALMOS [None]
  - TRISMUS [None]
  - DEATH [None]
  - DECUBITUS ULCER [None]
  - HYPOPHAGIA [None]
